FAERS Safety Report 15741721 (Version 2)
Quarter: 2019Q1

REPORT INFORMATION
  Report Type: Spontaneous
  Country: US (occurrence: US)
  Receive Date: 20181219
  Receipt Date: 20190212
  Transmission Date: 20190417
  Serious: Yes (Death, Hospitalization)
  Sender: FDA-Public Use
  Company Number: US-ACTELION-A-US2018-183825

PATIENT
  Age: 85 Year
  Sex: Male
  Weight: 88.44 kg

DRUGS (3)
  1. TADALAFIL. [Concomitant]
     Active Substance: TADALAFIL
  2. OPSUMIT [Suspect]
     Active Substance: MACITENTAN
     Indication: PULMONARY ARTERIAL HYPERTENSION
     Dosage: 10 MG, QD
     Route: 048
     Dates: start: 201810
  3. WARFARIN [Concomitant]
     Active Substance: WARFARIN

REACTIONS (7)
  - Prostatomegaly [Unknown]
  - Death [Fatal]
  - Unresponsive to stimuli [Fatal]
  - Fall [Recovered/Resolved]
  - Wound haemorrhage [Unknown]
  - Dehydration [Unknown]
  - Unevaluable event [Unknown]

NARRATIVE: CASE EVENT DATE: 201811
